FAERS Safety Report 18251673 (Version 2)
Quarter: 2020Q3

REPORT INFORMATION
  Report Type: Report from Study
  Country: None (occurrence: IL)
  Receive Date: 20200910
  Receipt Date: 20200923
  Transmission Date: 20201103
  Serious: Yes (Hospitalization)
  Sender: FDA-Public Use
  Company Number: IL-ABBVIE-20K-082-3458689-00

PATIENT
  Sex: Female

DRUGS (4)
  1. METHOTREXATE. [Concomitant]
     Active Substance: METHOTREXATE
     Indication: PRODUCT USED FOR UNKNOWN INDICATION
  2. HUMIRA [Suspect]
     Active Substance: ADALIMUMAB
     Route: 058
     Dates: start: 202005, end: 202007
  3. REMICADE [Concomitant]
     Active Substance: INFLIXIMAB
     Indication: PRODUCT USED FOR UNKNOWN INDICATION
  4. HUMIRA [Suspect]
     Active Substance: ADALIMUMAB
     Indication: CROHN^S DISEASE
     Route: 058
     Dates: start: 20180712, end: 202005

REACTIONS (16)
  - Colitis [Not Recovered/Not Resolved]
  - Drug ineffective [Not Recovered/Not Resolved]
  - General physical health deterioration [Recovering/Resolving]
  - Dysphonia [Recovered/Resolved]
  - Tongue coated [Unknown]
  - Diarrhoea [Recovering/Resolving]
  - Inflammatory marker increased [Unknown]
  - Drug level decreased [Unknown]
  - Asthenia [Recovering/Resolving]
  - Oropharyngeal pain [Recovered/Resolved]
  - Condition aggravated [Unknown]
  - Pyrexia [Unknown]
  - Abdominal pain [Recovered/Resolved]
  - Tongue dry [Unknown]
  - Cough [Recovered/Resolved]
  - Colonoscopy abnormal [Unknown]

NARRATIVE: CASE EVENT DATE: 2020
